FAERS Safety Report 20884638 (Version 1)
Quarter: 2022Q2

REPORT INFORMATION
  Report Type: Spontaneous
  Country: US (occurrence: US)
  Receive Date: 20220527
  Receipt Date: 20220527
  Transmission Date: 20220721
  Serious: No
  Sender: FDA-Public Use
  Company Number: US-PFIZER INC-202200767153

PATIENT
  Age: 81 Year
  Sex: Female

DRUGS (1)
  1. IBRANCE [Suspect]
     Active Substance: PALBOCICLIB
     Indication: Lung neoplasm malignant
     Dosage: 75 MG, CYCLIC NOT TAKING IT ON SUNDAYS AND THEN SHE TAKES IT FOR THREE WEEKS ON AND ONE WEEK OFF

REACTIONS (2)
  - Off label use [Unknown]
  - Therapeutic response unexpected [Unknown]
